FAERS Safety Report 4643723-1 (Version None)
Quarter: 2005Q2

REPORT INFORMATION
  Report Type: 
  Country: None (occurrence: None)
  Receive Date: 20050425
  Receipt Date: 20050420
  Transmission Date: 20051028
  Serious: Yes (Hospitalization)
  Sender: FDA-Public Use
  Company Number: ZA-BRISTOL-MYERS SQUIBB COMPANY-12940128

PATIENT
  Age: 10 Year
  Sex: Male

DRUGS (4)
  1. STOCRIN [Suspect]
     Dosage: WITHHELD FOR 2 DAYS, REINTRODUCED AND THEN WITHDRAWN.
     Route: 048
     Dates: start: 20050310, end: 20050412
  2. STAVUDINE [Suspect]
     Dosage: WITHHELD FOR 2 DAYS AND REINTRODUCED.
     Route: 048
     Dates: start: 20050310
  3. EPIVIR [Suspect]
     Dosage: WITHHELD FOR 2 DAYS AND REINTRODUCED.
     Route: 048
     Dates: start: 20050310
  4. BACTRIM [Concomitant]
     Dates: start: 20041005

REACTIONS (1)
  - URTICARIA [None]
